FAERS Safety Report 12117736 (Version 4)
Quarter: 2016Q2

REPORT INFORMATION
  Report Type: Report from Study
  Country: JP (occurrence: JP)
  Receive Date: 20160226
  Receipt Date: 20160609
  Transmission Date: 20160815
  Serious: Yes (Hospitalization, Other)
  Sender: FDA-Public Use
  Company Number: JP-ALXN-A201601153AA

PATIENT
  Age: 82 Year
  Sex: Female
  Weight: 29 kg

DRUGS (8)
  1. DIART [Concomitant]
     Active Substance: AZOSEMIDE
     Indication: OEDEMA
     Dosage: 60 MG, QD
     Route: 048
     Dates: start: 20150310, end: 20150903
  2. NATRIX [Concomitant]
     Active Substance: INDAPAMIDE
     Indication: OEDEMA
     Dosage: 1 MG, QD
     Route: 048
     Dates: start: 20150831, end: 20151206
  3. SPIRONOLACTONE. [Concomitant]
     Active Substance: SPIRONOLACTONE
     Indication: OEDEMA
     Dosage: 25 MG, QD
     Route: 048
     Dates: start: 20150831
  4. FEBURIC [Concomitant]
     Active Substance: FEBUXOSTAT
     Indication: HYPERURICAEMIA
     Dosage: 10 MG, QD
     Route: 048
     Dates: start: 20150403
  5. SOLIRIS [Suspect]
     Active Substance: ECULIZUMAB
     Indication: HAEMOLYTIC URAEMIC SYNDROME
     Dosage: 900 MG, QW
     Route: 042
     Dates: start: 20150202, end: 20150223
  6. SOLIRIS [Suspect]
     Active Substance: ECULIZUMAB
     Dosage: 1200 MG, Q2W
     Route: 042
     Dates: start: 20150302, end: 20150831
  7. LANSOPRAZOLE. [Concomitant]
     Active Substance: LANSOPRAZOLE
     Indication: PROPHYLAXIS AGAINST GASTROINTESTINAL ULCER
     Dosage: 15 MG, QD
     Route: 048
     Dates: start: 20150202
  8. DIART [Concomitant]
     Active Substance: AZOSEMIDE
     Dosage: 30 MG, QD
     Dates: start: 20150914

REACTIONS (3)
  - Drug ineffective [Unknown]
  - Pneumonia staphylococcal [Recovered/Resolved]
  - Renal impairment [Not Recovered/Not Resolved]

NARRATIVE: CASE EVENT DATE: 20150831
